FAERS Safety Report 8809525 (Version 1)
Quarter: 2012Q4

REPORT INFORMATION
  Report Type: 
  Country: US (occurrence: US)
  Receive Date: 20120926
  Receipt Date: 20120926
  Transmission Date: 20130627
  Serious: No
  Sender: FDA-Public Use
  Company Number: US-ASTRAZENECA-2012SE70448

PATIENT
  Age: 64 Year
  Sex: Male
  Weight: 77.1 kg

DRUGS (3)
  1. SEROQUEL XR [Suspect]
     Indication: PSYCHOMOTOR HYPERACTIVITY
     Route: 048
     Dates: start: 2009
  2. SEROQUEL XR [Suspect]
     Indication: LOGORRHOEA
     Route: 048
     Dates: start: 2009
  3. WATER PILL [Concomitant]
     Indication: HYPERTENSION

REACTIONS (4)
  - Insomnia [Unknown]
  - Psychomotor hyperactivity [Unknown]
  - Logorrhoea [Unknown]
  - Off label use [Unknown]
